FAERS Safety Report 5928313-2 (Version None)
Quarter: 2008Q4

REPORT INFORMATION
  Report Type: 
  Country: None (occurrence: None)
  Receive Date: 20081022
  Receipt Date: 20081022
  Transmission Date: 20090506
  Serious: Yes (Other)
  Sender: FDA-Public Use
  Company Number: None

PATIENT
  Sex: Male
  Weight: 53.6 kg

DRUGS (1)
  1. CYCLOPHOSPHAMIDE [Suspect]
     Dosage: 3540MG IV
     Route: 042

REACTIONS (1)
  - ORAL DISCOMFORT [None]
